FAERS Safety Report 6770281-8 (Version None)
Quarter: 2010Q2

REPORT INFORMATION
  Report Type: 
  Country: None (occurrence: None)
  Receive Date: 20100615
  Receipt Date: 20100610
  Transmission Date: 20101027
  Serious: Yes (Other)
  Sender: FDA-Public Use
  Company Number: US-BRISTOL-MYERS SQUIBB COMPANY-15136682

PATIENT
  Sex: Female

DRUGS (13)
  1. ABILIFY [Suspect]
     Dosage: 2ND DOSE ON 06JUN2010(AFTERNOON).
     Dates: start: 20100605
  2. KLONOPIN [Concomitant]
  3. LEXAPRO [Concomitant]
  4. ACIPHEX [Concomitant]
  5. ASPIRIN [Concomitant]
  6. PLAVIX [Concomitant]
  7. CRESTOR [Concomitant]
  8. ISOSORBIDE [Concomitant]
  9. RANEXA [Concomitant]
  10. DIOVAN [Concomitant]
  11. ACETAMINOPHEN [Concomitant]
  12. VICODIN [Concomitant]
  13. NITROGLYCERIN [Concomitant]

REACTIONS (3)
  - FATIGUE [None]
  - HALLUCINATION [None]
  - INSOMNIA [None]
